FAERS Safety Report 24789822 (Version 1)
Quarter: 2024Q4

REPORT INFORMATION
  Report Type: Spontaneous
  Country: US (occurrence: None)
  Receive Date: 20241229
  Receipt Date: 20241229
  Transmission Date: 20250114
  Serious: Yes (Disabling)
  Sender: Public
  Company Number: None

PATIENT
  Age: 74 Year
  Sex: Female
  Weight: 96.75 kg

DRUGS (8)
  1. ZEPBOUND [Suspect]
     Active Substance: TIRZEPATIDE
     Indication: Obesity
     Dosage: OTHER QUANTITY : 1 INJECTION(S);?OTHER FREQUENCY : ONCE PER WEEK;?OTHER ROUTE : INJECTION SQ;?
     Route: 058
     Dates: start: 20241113, end: 20241216
  2. ZEPBOUND [Suspect]
     Active Substance: TIRZEPATIDE
     Indication: Hypertension
  3. LISINOPRIL [Concomitant]
     Active Substance: LISINOPRIL
  4. LEVOTHYROXINE [Concomitant]
     Active Substance: LEVOTHYROXINE
  5. PREMPRO [Concomitant]
     Active Substance: ESTROGENS, CONJUGATED\MEDROXYPROGESTERONE ACETATE
  6. CARDURA [Concomitant]
     Active Substance: DOXAZOSIN MESYLATE
  7. ELIQUIS [Concomitant]
     Active Substance: APIXABAN
  8. VITAMIN B12 [Concomitant]
     Active Substance: CYANOCOBALAMIN

REACTIONS (7)
  - Vaginal haemorrhage [None]
  - Uterine prolapse [None]
  - Diarrhoea [None]
  - Therapy non-responder [None]
  - Constipation [None]
  - Vomiting [None]
  - Deep vein thrombosis [None]

NARRATIVE: CASE EVENT DATE: 20241227
